FAERS Safety Report 20793839 (Version 1)
Quarter: 2022Q2

REPORT INFORMATION
  Report Type: Spontaneous
  Country: ES (occurrence: ES)
  Receive Date: 20220506
  Receipt Date: 20220506
  Transmission Date: 20220721
  Serious: Yes (Hospitalization, Other)
  Sender: FDA-Public Use
  Company Number: None

PATIENT
  Age: 55 Year
  Sex: Female

DRUGS (4)
  1. JARDIANCE [Suspect]
     Active Substance: EMPAGLIFLOZIN
     Indication: Type 2 diabetes mellitus
     Route: 048
     Dates: start: 20181220, end: 20220412
  2. JANUMET 50 MG/1000 MG COMPRIMIDOS RECUBIERTOS CON PELICULA , 56 compri [Concomitant]
     Indication: Type 2 diabetes mellitus
     Route: 048
     Dates: start: 20140505
  3. ATORVASTATINA CINFA 20 mg COMPRIMIDOS RECUBIERTOS CON PELICULA EFG , 2 [Concomitant]
     Indication: Dyslipidaemia
     Route: 048
     Dates: start: 20181220
  4. OMEPRAZOLE [Concomitant]
     Active Substance: OMEPRAZOLE
     Indication: Product used for unknown indication
     Route: 048

REACTIONS (1)
  - Diabetic ketoacidosis [Recovered/Resolved]

NARRATIVE: CASE EVENT DATE: 20220412
